FAERS Safety Report 16864374 (Version 1)
Quarter: 2019Q3

REPORT INFORMATION
  Report Type: Spontaneous
  Country: US (occurrence: US)
  Receive Date: 20190928
  Receipt Date: 20190928
  Transmission Date: 20191005
  Serious: Yes (Hospitalization, Other)
  Sender: FDA-Public Use
  Company Number: US-ZYDUS-041223

PATIENT
  Age: 50 Year
  Sex: Male

DRUGS (1)
  1. WARFARIN [Suspect]
     Active Substance: WARFARIN
     Indication: ANTICOAGULANT THERAPY
     Route: 065

REACTIONS (5)
  - Calciphylaxis [Unknown]
  - Purulent discharge [Unknown]
  - Pyrexia [Unknown]
  - Pain [Unknown]
  - Skin ulcer [Unknown]
